FAERS Safety Report 6383242-8 (Version None)
Quarter: 2009Q3

REPORT INFORMATION
  Report Type: 
  Country: None (occurrence: None)
  Receive Date: 20090930
  Receipt Date: 20090925
  Transmission Date: 20100115
  Serious: Yes (Other)
  Sender: FDA-Public Use
  Company Number: FR-ROXANE LABORATORIES, INC.-2009-RO-00997RO

PATIENT
  Age: 50 Year
  Sex: Male

DRUGS (8)
  1. CYCLOPHOSPHAMIDE [Suspect]
     Indication: PROSTATE CANCER METASTATIC
     Dosage: 100 MG
     Route: 048
  2. DOCETAXEL [Suspect]
     Indication: PROSTATE CANCER METASTATIC
  3. MITOXANTRONE [Suspect]
     Indication: PROSTATE CANCER METASTATIC
  4. BISPHOSPHONATE [Suspect]
     Indication: PROSTATE CANCER METASTATIC
  5. DIETHYL-STILBESTROL TAB [Suspect]
     Indication: PROSTATE CANCER METASTATIC
  6. KAMILLOSAN [Concomitant]
     Indication: RECALL PHENOMENON
  7. SEPANTHOL [Concomitant]
     Indication: RECALL PHENOMENON
  8. PARACETAMOL [Concomitant]
     Indication: RECALL PHENOMENON

REACTIONS (1)
  - RECALL PHENOMENON [None]
